FAERS Safety Report 12650627 (Version 1)
Quarter: 2016Q3

REPORT INFORMATION
  Report Type: Spontaneous
  Country: US (occurrence: US)
  Receive Date: 20160815
  Receipt Date: 20160815
  Transmission Date: 20161109
  Serious: No
  Sender: FDA-Public Use
  Company Number: US-BEH-2016072503

PATIENT
  Sex: Female
  Weight: 97.51 kg

DRUGS (20)
  1. HIZENTRA [Suspect]
     Active Substance: HUMAN IMMUNOGLOBULIN G
     Indication: IMMUNODEFICIENCY COMMON VARIABLE
  2. LIPITOR [Concomitant]
     Active Substance: ATORVASTATIN CALCIUM
  3. NOVOLIN N [Concomitant]
     Active Substance: INSULIN HUMAN
  4. GLIMEPIRIDE. [Concomitant]
     Active Substance: GLIMEPIRIDE
  5. HYDROCHLOROTHIAZIDE. [Concomitant]
     Active Substance: HYDROCHLOROTHIAZIDE
  6. NOVOLIN R [Concomitant]
     Active Substance: INSULIN HUMAN
  7. ACETAMINOPHEN. [Concomitant]
     Active Substance: ACETAMINOPHEN
  8. LISINOPRIL. [Concomitant]
     Active Substance: LISINOPRIL
  9. DIPHENHYDRAMINE. [Concomitant]
     Active Substance: DIPHENHYDRAMINE
  10. METFORMIN [Concomitant]
     Active Substance: METFORMIN HYDROCHLORIDE
  11. NORVASC [Concomitant]
     Active Substance: AMLODIPINE BESYLATE
  12. HIZENTRA [Suspect]
     Active Substance: HUMAN IMMUNOGLOBULIN G
     Indication: TYPE IIA HYPERLIPIDAEMIA
     Dosage: 16 G, EVERY 10 DAYS
     Route: 058
     Dates: start: 20100708
  13. VITAMIN D                          /00107901/ [Concomitant]
     Active Substance: ERGOCALCIFEROL
  14. HIZENTRA [Suspect]
     Active Substance: HUMAN IMMUNOGLOBULIN G
     Indication: ESSENTIAL HYPERTENSION
  15. EPIPEN [Concomitant]
     Active Substance: EPINEPHRINE
  16. ANASTROZOLE. [Concomitant]
     Active Substance: ANASTROZOLE
  17. ASPIRIN. [Concomitant]
     Active Substance: ASPIRIN
  18. LEVAQUIN [Concomitant]
     Active Substance: LEVOFLOXACIN
  19. CLARITIN [Concomitant]
     Active Substance: LORATADINE
  20. CALCIUM [Concomitant]
     Active Substance: CALCIUM

REACTIONS (1)
  - Infusion site irritation [Unknown]
